FAERS Safety Report 4271856-0 (Version None)
Quarter: 2004Q1

REPORT INFORMATION
  Report Type: 
  Country: None (occurrence: None)
  Receive Date: 20040115
  Receipt Date: 20040109
  Transmission Date: 20041129
  Serious: Yes (Hospitalization)
  Sender: FDA-Public Use
  Company Number: WAES 0401USA00674

PATIENT
  Age: 60 Year
  Sex: Female

DRUGS (1)
  1. STROMECTOL [Suspect]
     Route: 048
     Dates: start: 20030710, end: 20030710

REACTIONS (5)
  - ASTHENIA [None]
  - DIARRHOEA [None]
  - DIPLEGIA [None]
  - HYPOTENSION [None]
  - PYREXIA [None]
